FAERS Safety Report 9731902 (Version 2)
Quarter: 2013Q4

REPORT INFORMATION
  Report Type: Report from Study
  Country: DE (occurrence: DE)
  Receive Date: 20131205
  Receipt Date: 20131219
  Transmission Date: 20140711
  Serious: Yes (Death, Hospitalization, Other)
  Sender: FDA-Public Use
  Company Number: DE-ROCHE-1309397

PATIENT
  Age: 39 Year
  Sex: Female

DRUGS (4)
  1. VEMURAFENIB [Suspect]
     Indication: METASTATIC MALIGNANT MELANOMA
     Route: 048
     Dates: start: 20120531, end: 20130904
  2. IPILIMUMAB [Suspect]
     Indication: METASTATIC MALIGNANT MELANOMA
     Route: 065
  3. LAMOTRIGIN [Concomitant]
     Indication: DEPRESSION
     Route: 048
  4. SEROQUEL [Concomitant]
     Indication: DEPRESSION
     Route: 048

REACTIONS (7)
  - Malignant neoplasm progression [Fatal]
  - Nervous system disorder [Unknown]
  - Melanomatous meningitis [Unknown]
  - Peroneal nerve palsy [Unknown]
  - Paraesthesia [Not Recovered/Not Resolved]
  - Milia [Recovered/Resolved]
  - Solar dermatitis [Recovered/Resolved]
